APPROVED DRUG PRODUCT: VISIONBLUE
Active Ingredient: TRYPAN BLUE
Strength: 0.06%
Dosage Form/Route: SOLUTION;OPHTHALMIC
Application: N021670 | Product #001
Applicant: DORC INTERNATIONAL BV
Approved: Dec 16, 2004 | RLD: Yes | RS: Yes | Type: RX